FAERS Safety Report 13895921 (Version 1)
Quarter: 2017Q3

REPORT INFORMATION
  Report Type: Report from Study
  Country: US (occurrence: US)
  Receive Date: 20170823
  Receipt Date: 20170823
  Transmission Date: 20171127
  Serious: Yes (Hospitalization)
  Sender: FDA-Public Use
  Company Number: US-EISAI MEDICAL RESEARCH-EC-2017-029687

PATIENT
  Sex: Male
  Weight: 99.79 kg

DRUGS (2)
  1. HYDROCHLOROTHIAZIDE. [Concomitant]
     Active Substance: HYDROCHLOROTHIAZIDE
  2. LENVIMA [Suspect]
     Active Substance: LENVATINIB
     Indication: THYROID CANCER
     Route: 048
     Dates: start: 20170621, end: 201708

REACTIONS (10)
  - Atrial fibrillation [Unknown]
  - Disorientation [Unknown]
  - Headache [Unknown]
  - Constipation [Unknown]
  - Dysphonia [Unknown]
  - Joint injury [Unknown]
  - Asthenia [Unknown]
  - Arthropathy [Unknown]
  - Fall [Unknown]
  - Blood pressure increased [Unknown]

NARRATIVE: CASE EVENT DATE: 2017
